FAERS Safety Report 4624436-9 (Version None)
Quarter: 2005Q1

REPORT INFORMATION
  Report Type: 
  Country: None (occurrence: None)
  Receive Date: 20050330
  Receipt Date: 20050330
  Transmission Date: 20050727
  Serious: No
  Sender: FDA-Public Use
  Company Number: None

PATIENT
  Age: 48 Year
  Sex: Female
  Weight: 68.4932 kg

DRUGS (4)
  1. OXYBUTYNIN 5MG ONE TAB TID [Suspect]
     Indication: HYPERTONIC BLADDER
     Dosage: 5MG ONE TAB TID
     Dates: start: 19970303, end: 20010221
  2. OXYBUTYNIN 5MG ONE TAB TID [Suspect]
     Indication: URGE INCONTINENCE
     Dosage: 5MG ONE TAB TID
     Dates: start: 19970303, end: 20010221
  3. PRO-BANTHINE [Concomitant]
  4. MACROBID [Concomitant]

REACTIONS (6)
  - CONDITION AGGRAVATED [None]
  - DRUG INEFFECTIVE [None]
  - HYPERTONIC BLADDER [None]
  - PHARMACEUTICAL PRODUCT COMPLAINT [None]
  - POLLAKIURIA [None]
  - URGE INCONTINENCE [None]
